FAERS Safety Report 26143763 (Version 1)
Quarter: 2025Q4

REPORT INFORMATION
  Report Type: Other
  Country: IN (occurrence: IN)
  Receive Date: 20251211
  Receipt Date: 20251211
  Transmission Date: 20260118
  Serious: Yes (Other)
  Sender: EVEREST LIFE SCIENCES LLC
  Company Number: IN-Everest Life Sciences LLC-2190353

PATIENT
  Age: 45 Year
  Sex: Male

DRUGS (3)
  1. DAPSONE [Suspect]
     Active Substance: DAPSONE
     Indication: Borderline leprosy
  2. RIFAMPIN [Concomitant]
     Active Substance: RIFAMPIN
  3. CLOFAZIMINE [Concomitant]
     Active Substance: CLOFAZIMINE

REACTIONS (1)
  - Drug reaction with eosinophilia and systemic symptoms [Recovered/Resolved]
